FAERS Safety Report 5506154-8 (Version None)
Quarter: 2007Q4

REPORT INFORMATION
  Report Type: 
  Country: None (occurrence: None)
  Receive Date: 20071105
  Receipt Date: 20071026
  Transmission Date: 20080405
  Serious: Yes (Other)
  Sender: FDA-Public Use
  Company Number: PHBS2007JP17399

PATIENT
  Age: 85 Year
  Sex: Female

DRUGS (4)
  1. GLIVEC [Suspect]
     Indication: ACUTE LYMPHOCYTIC LEUKAEMIA
     Dosage: 600 MG/D
     Route: 048
     Dates: start: 20070425, end: 20070101
  2. GLIVEC [Suspect]
     Route: 048
     Dates: start: 20070101
  3. VINCRISTINE SULFATE [Concomitant]
     Indication: ACUTE LYMPHOCYTIC LEUKAEMIA
     Dosage: 1.9 MG/D
     Route: 065
     Dates: start: 20070425
  4. PREDNISOLONE [Concomitant]
     Indication: ACUTE LYMPHOCYTIC LEUKAEMIA
     Dosage: 60 MG/D
     Route: 065
     Dates: start: 20070425

REACTIONS (2)
  - PLEURAL EFFUSION [None]
  - PNEUMONIA ASPIRATION [None]
